FAERS Safety Report 22195529 (Version 1)
Quarter: 2023Q2

REPORT INFORMATION
  Report Type: Spontaneous
  Country: RO (occurrence: RO)
  Receive Date: 20230411
  Receipt Date: 20230411
  Transmission Date: 20230722
  Serious: Yes (Other)
  Sender: FDA-Public Use
  Company Number: RO-AMGEN-ROUSP2023051577

PATIENT
  Age: 65 Year
  Sex: Male

DRUGS (6)
  1. IRINOTECAN [Suspect]
     Active Substance: IRINOTECAN
     Indication: Colorectal cancer metastatic
     Dosage: 125 MILLIGRAM/SQ. METER
     Route: 042
     Dates: start: 20201123
  2. CAPECITABINE [Suspect]
     Active Substance: CAPECITABINE
     Indication: Colorectal cancer metastatic
     Dosage: UNK UNK, DAILY(5 TABLETS PER DAY)
     Route: 065
  3. FLUOROURACIL [Suspect]
     Active Substance: FLUOROURACIL
     Indication: Colorectal cancer metastatic
     Dosage: 500 MILLIGRAM/SQ. METER
     Route: 042
     Dates: start: 20201123
  4. LEUCOVORIN [Suspect]
     Active Substance: LEUCOVORIN
     Indication: Colorectal cancer metastatic
     Dosage: 20 MILLIGRAM/SQ. METER
     Route: 042
     Dates: start: 20201123
  5. VECTIBIX [Suspect]
     Active Substance: PANITUMUMAB
     Indication: Colorectal cancer metastatic
     Dosage: 6 MILLIGRAM/KILOGRAM
     Route: 042
     Dates: start: 20201123
  6. VECTIBIX [Suspect]
     Active Substance: PANITUMUMAB
     Dosage: 6 MILLIGRAM/KILOGRAM
     Route: 042
     Dates: start: 2021

REACTIONS (7)
  - Rectal cancer [Unknown]
  - Rectal haemorrhage [Unknown]
  - Lymphadenopathy [Unknown]
  - Proctalgia [Unknown]
  - Rash pustular [Unknown]
  - Skin toxicity [Unknown]
  - Skin reaction [Unknown]

NARRATIVE: CASE EVENT DATE: 20210520
